FAERS Safety Report 9094018 (Version 1)
Quarter: 2013Q1

REPORT INFORMATION
  Report Type: Report from Study
  Country: US (occurrence: US)
  Receive Date: 20130201
  Receipt Date: 20130201
  Transmission Date: 20140127
  Serious: Yes (Other)
  Sender: FDA-Public Use
  Company Number: US-ROCHE-1186686

PATIENT
  Age: 11 Year
  Sex: Male

DRUGS (3)
  1. BEVACIZUMAB [Suspect]
     Indication: BRAIN STEM GLIOMA
     Route: 042
  2. TEMOZOLOMIDE [Suspect]
     Indication: BRAIN STEM GLIOMA
     Dosage: DAILY FOR 5 DAYS EVERY 28 DAYS
     Route: 065
  3. DEXAMETHASONE [Concomitant]

REACTIONS (3)
  - Lymphopenia [Unknown]
  - Neutropenia [Recovered/Resolved]
  - Thrombocytopenia [Recovered/Resolved]
